FAERS Safety Report 7230905-8 (Version None)
Quarter: 2011Q1

REPORT INFORMATION
  Report Type: 
  Country: None (occurrence: None)
  Receive Date: 20110118
  Receipt Date: 20110106
  Transmission Date: 20110831
  Serious: Yes (Hospitalization, Other)
  Sender: FDA-Public Use
  Company Number: US-ROCHE-731074

PATIENT
  Sex: Male
  Weight: 54.4 kg

DRUGS (2)
  1. BIAXIN [Concomitant]
     Dates: start: 20041029
  2. ACCUTANE [Suspect]
     Indication: ACNE
     Dosage: STRENGTH 20 MG/ 40 MG
     Route: 065
     Dates: start: 20040716, end: 20050211

REACTIONS (12)
  - COLONIC POLYP [None]
  - DEPRESSION [None]
  - COLITIS [None]
  - ANAL FISTULA [None]
  - INTESTINAL OBSTRUCTION [None]
  - CROHN'S DISEASE [None]
  - GASTROINTESTINAL INJURY [None]
  - OESOPHAGEAL DISORDER [None]
  - ARTHRITIS [None]
  - ARTHRALGIA [None]
  - INFLAMMATORY BOWEL DISEASE [None]
  - INTESTINAL ULCER [None]
